FAERS Safety Report 7179747-2 (Version None)
Quarter: 2010Q4

REPORT INFORMATION
  Report Type: 
  Country: None (occurrence: None)
  Receive Date: 20101221
  Receipt Date: 20101213
  Transmission Date: 20110411
  Serious: Yes (Hospitalization)
  Sender: FDA-Public Use
  Company Number: GB-ROCHE-748662

PATIENT
  Sex: Male

DRUGS (11)
  1. MYCOPHENOLATE MOFETIL [Suspect]
     Route: 065
     Dates: start: 20020926
  2. BELATACEPT [Suspect]
     Route: 042
     Dates: start: 20020926, end: 20100913
  3. PREDNISONE [Suspect]
     Route: 065
     Dates: start: 20020926
  4. VALSARTAN [Concomitant]
     Dates: start: 20050705
  5. FERROUS SULFATE TAB [Concomitant]
     Dates: start: 20050703
  6. FLUTICASON [Concomitant]
     Dates: start: 20020926
  7. EZETIMIBE [Concomitant]
     Dates: start: 20071215
  8. SALBUTAMOL [Concomitant]
     Dates: start: 20030428
  9. OXITROPIUM [Concomitant]
     Dates: start: 20020926
  10. CYCLIZINE [Concomitant]
     Dates: start: 20090101
  11. ACETAMINOPHEN [Concomitant]
     Dates: start: 20081229

REACTIONS (4)
  - SALIVARY GLAND MASS [None]
  - SPINAL CORD COMPRESSION [None]
  - SPONDYLITIC MYELOPATHY [None]
  - UROSEPSIS [None]
